FAERS Safety Report 4401575-9 (Version None)
Quarter: 2004Q3

REPORT INFORMATION
  Report Type: 
  Country: None (occurrence: None)
  Receive Date: 20040719
  Receipt Date: 20031113
  Transmission Date: 20050211
  Serious: Yes (Hospitalization)
  Sender: FDA-Public Use
  Company Number: JP-MERCK-0311USA01906

PATIENT
  Age: 56 Year
  Sex: Female
  Weight: 44 kg

DRUGS (8)
  1. PULMICORT [Concomitant]
     Route: 055
     Dates: start: 20020401
  2. SINGULAIR [Suspect]
     Indication: ASTHMA
     Route: 048
     Dates: start: 20020401, end: 20020601
  3. SINGULAIR [Suspect]
     Route: 048
     Dates: start: 20020701, end: 20020801
  4. SINGULAIR [Suspect]
     Route: 048
     Dates: start: 20021001, end: 20031010
  5. PREDONINE [Concomitant]
     Route: 048
     Dates: start: 20020401
  6. PROCATEROL HYDROCHLORIDE [Concomitant]
     Route: 048
     Dates: start: 19980401, end: 20020501
  7. SEREVENT [Concomitant]
     Route: 055
     Dates: start: 20020901
  8. UNIPHYL [Concomitant]
     Route: 048
     Dates: start: 19990601

REACTIONS (5)
  - ALLERGIC GRANULOMATOUS ANGIITIS [None]
  - BLOOD ALKALINE PHOSPHATASE INCREASED [None]
  - DRUG INEFFECTIVE [None]
  - FEELING ABNORMAL [None]
  - WHITE BLOOD CELL COUNT INCREASED [None]
